FAERS Safety Report 6075564-5 (Version None)
Quarter: 2009Q1

REPORT INFORMATION
  Report Type: 
  Country: None (occurrence: None)
  Receive Date: 20090210
  Receipt Date: 20090127
  Transmission Date: 20090719
  Serious: Yes (Death, Hospitalization)
  Sender: FDA-Public Use
  Company Number: 2008002364

PATIENT
  Age: 76 Year
  Sex: Female

DRUGS (6)
  1. TARCEVA [Suspect]
     Indication: LUNG NEOPLASM MALIGNANT
     Dosage: 150 MG, QD, ORAL
     Route: 048
     Dates: start: 20080411, end: 20080418
  2. AMITRIPTYLINE HCL [Concomitant]
  3. HALDOL SOLUTAB [Concomitant]
  4. VOLTAREN [Concomitant]
  5. LYTOS (CLODRONATE DISODIUM) [Concomitant]
  6. OXYCONTIN [Concomitant]

REACTIONS (10)
  - BLOOD ALBUMIN DECREASED [None]
  - BLOOD CREATINE INCREASED [None]
  - BLOOD SODIUM DECREASED [None]
  - CLOSTRIDIAL INFECTION [None]
  - CULTURE STOOL POSITIVE [None]
  - DEHYDRATION [None]
  - DIARRHOEA [None]
  - MUCOSAL INFLAMMATION [None]
  - SUDDEN DEATH [None]
  - VOMITING [None]
